FAERS Safety Report 8065621-6 (Version None)
Quarter: 2012Q1

REPORT INFORMATION
  Report Type: 
  Country: None (occurrence: None)
  Receive Date: 20120117
  Receipt Date: 20120102
  Transmission Date: 20120608
  Serious: Yes (Hospitalization)
  Sender: FDA-Public Use
  Company Number: 1000026789

PATIENT
  Age: 88 Year
  Sex: Female

DRUGS (11)
  1. SINGULAIR (MONTELUKAST SODIUM) (MONTELUKAST SODIUM) [Concomitant]
  2. IXPRIM (PARACETAMOL W/TRAMADOL) (TABLETS) [Suspect]
     Dosage: 2 TO 3 TABLETS (362.5 MG, 1 IN 1 D), ORAL
     Route: 048
     Dates: start: 20111205, end: 20111212
  3. MOVICOL (MOVICOL /01749801/) (MOVICOL /0749801/) [Concomitant]
  4. SERETIDE (SERETIDE) (SERETIDE) [Concomitant]
  5. ATORVASTATIN CALCIUM [Concomitant]
  6. AMLODIPINE BESYLATE [Concomitant]
  7. CACIT D3 (LEKOVIT CA) (LEKOVIT CA) [Concomitant]
  8. INNOHEP (TINZAPARIN SODIUM) (TINZAPARIN SODIUM) [Concomitant]
  9. COUMADINE (WARFARIN SODIUM) (WARFARIN SODIUM) [Concomitant]
  10. ESCITALOPRAM OXALATE [Suspect]
     Indication: DEPRESSION
     Dosage: 5 MG (5 MG, 1 IN 1 D), ORAL
     Route: 048
     Dates: start: 20111210
  11. ALLOPURINOL [Concomitant]

REACTIONS (6)
  - HALLUCINATION, VISUAL [None]
  - HAEMATOMA [None]
  - CONFUSIONAL STATE [None]
  - FACIAL BONES FRACTURE [None]
  - DRUG INTERACTION [None]
  - EPISTAXIS [None]
